FAERS Safety Report 6537778-7 (Version None)
Quarter: 2010Q1

REPORT INFORMATION
  Report Type: 
  Country: None (occurrence: None)
  Receive Date: 20100114
  Receipt Date: 20100105
  Transmission Date: 20100710
  Serious: Yes (Other)
  Sender: FDA-Public Use
  Company Number: CH-PFIZER INC-2010002416

PATIENT
  Age: 54 Year
  Sex: Male
  Weight: 91 kg

DRUGS (6)
  1. FLUCONAZOLE [Suspect]
     Dosage: 150 MG, 1X/DAY
     Route: 048
     Dates: start: 20091014, end: 20091018
  2. PANTOPRAZOLE [Suspect]
     Indication: GASTROOESOPHAGEAL REFLUX DISEASE
     Dosage: 20 MG, 1X/DAY
     Route: 048
     Dates: start: 20091021, end: 20091027
  3. HYDROCORTISONE [Concomitant]
     Dosage: 10 MG, 2X/DAY
     Route: 048
  4. LEVOTHYROXINE SODIUM [Concomitant]
     Dosage: 150 UG, 1X/DAY
     Route: 048
  5. SIMVASTATIN [Concomitant]
     Dosage: 40 MG, 1X/DAY
  6. SERTRALINE [Concomitant]
     Dosage: 25 MG, 1X/DAY

REACTIONS (3)
  - DRUG INTERACTION [None]
  - PRURITUS [None]
  - PURPURA [None]
